FAERS Safety Report 5945575-6 (Version None)
Quarter: 2008Q4

REPORT INFORMATION
  Report Type: 
  Country: None (occurrence: None)
  Receive Date: 20081107
  Receipt Date: 20081106
  Transmission Date: 20090506
  Serious: Yes (Hospitalization)
  Sender: FDA-Public Use
  Company Number: DE-B.I. PHARMACEUTICALS,INC./RIDGEFIELD-2008-DE-06649DE

PATIENT
  Sex: Female

DRUGS (7)
  1. AGGRENOX [Suspect]
     Dosage: 5ANZ
     Route: 048
  2. ASPIRIN [Suspect]
     Dosage: 5ANZ
     Route: 048
  3. ENALAPRIL MALEATE [Suspect]
     Dosage: 5ANZ
     Route: 048
  4. HYDROCHLOROTHIAZIDE [Suspect]
     Dosage: 5ANZ
     Route: 048
  5. METOPROLOL TARTRATE [Suspect]
     Dosage: 15ANZ
     Route: 048
  6. MIRTAZAPINE [Suspect]
     Dosage: 5ANZ
     Route: 048
  7. SIMVASTATIN [Suspect]
     Dosage: 5ANZ
     Route: 048

REACTIONS (2)
  - ACCIDENTAL OVERDOSE [None]
  - MEDICATION ERROR [None]
